FAERS Safety Report 6253009-X (Version None)
Quarter: 2009Q3

REPORT INFORMATION
  Report Type: 
  Country: None (occurrence: None)
  Receive Date: 20090701
  Receipt Date: 20090506
  Transmission Date: 20100115
  Serious: Yes (Death)
  Sender: FDA-Public Use
  Company Number: ET-PFIZER INC-2009233265

PATIENT
  Age: 15 Month

DRUGS (1)
  1. ZITHROMAX [Suspect]
     Indication: TRACHOMA
     Dosage: UNK
     Dates: start: 20090430

REACTIONS (1)
  - CHOKING [None]
